FAERS Safety Report 15331856 (Version 1)
Quarter: 2018Q3

REPORT INFORMATION
  Report Type: Spontaneous
  Country: GB (occurrence: GB)
  Receive Date: 20180829
  Receipt Date: 20180829
  Transmission Date: 20181010
  Serious: Yes (Death)
  Sender: FDA-Public Use
  Company Number: GB-PFIZER INC-2018347323

PATIENT
  Age: 27 Year
  Sex: Male

DRUGS (1)
  1. LYRICA [Suspect]
     Active Substance: PREGABALIN
     Indication: NEURALGIA
     Dosage: UNK

REACTIONS (5)
  - Dysarthria [Fatal]
  - Accidental overdose [Fatal]
  - Confusional state [Fatal]
  - Toxicity to various agents [Fatal]
  - Memory impairment [Fatal]
